FAERS Safety Report 7470218-2 (Version None)
Quarter: 2011Q2

REPORT INFORMATION
  Report Type: 
  Country: None (occurrence: None)
  Receive Date: 20110510
  Receipt Date: 20110505
  Transmission Date: 20111010
  Serious: Yes (Hospitalization)
  Sender: FDA-Public Use
  Company Number: SE-PFIZER INC-2009182122

PATIENT
  Age: 73 Year
  Sex: Male
  Weight: 70 kg

DRUGS (14)
  1. DICLOFENAC [Concomitant]
     Dosage: 50 MG, 2X/DAY
     Route: 048
     Dates: start: 20080101
  2. SELOKEN [Concomitant]
     Indication: HYPERTENSION
     Dosage: 50 MG, 2X/DAY
     Route: 048
     Dates: start: 20010101
  3. SUNITINIB MALATE [Suspect]
     Indication: PROSTATE CANCER
     Dosage: 25 MG, 1X/DAY
     Route: 048
     Dates: start: 20090205, end: 20090309
  4. OMEPRAZOL [Concomitant]
     Indication: GASTRITIS PROPHYLAXIS
     Dosage: 20 MG, 1X/DAY
     Route: 048
     Dates: start: 20080101
  5. TROMBYL [Concomitant]
     Indication: THROMBOSIS PROPHYLAXIS
     Dosage: 75 MG, 1X/DAY
     Route: 048
     Dates: start: 20010101
  6. TRAMADOL HCL [Suspect]
     Dosage: 100 MG, 3X/DAY
     Route: 048
     Dates: start: 20090213
  7. PRIMPERAN TAB [Concomitant]
     Indication: NAUSEA
     Dosage: 10 MG 1X3
     Route: 048
     Dates: start: 20090201
  8. ACETAMINOPHEN [Concomitant]
     Indication: PAIN
     Dosage: 500 MG, AS NEEDED
     Route: 048
     Dates: start: 20080101
  9. AMLODIPINE [Concomitant]
     Indication: HYPERTENSION
     Dosage: 5 MG, UNK
     Route: 048
     Dates: start: 20010101
  10. PLACEBO [Suspect]
     Indication: PROSTATE CANCER
     Dosage: 25 MG, 1X/DAY
     Route: 048
     Dates: start: 20090205, end: 20090309
  11. PREDNISOLONE [Suspect]
     Indication: PROSTATE CANCER
     Dosage: 5 MG, 2X/DAY
     Route: 048
     Dates: start: 20090205, end: 20090309
  12. PROCRIN DEPOT [Concomitant]
     Indication: PROSTATE CANCER
     Dosage: 11.25 MG, 1/3 MON
     Dates: start: 20000901
  13. BLINDED NO SUBJECT DRUG [Suspect]
     Indication: PROSTATE CANCER
     Dosage: 25 MG, 1X/DAY
     Route: 048
     Dates: start: 20090205, end: 20090309
  14. PRAVASTATIN [Concomitant]
     Indication: HYPERCHOLESTEROLAEMIA
     Dosage: 40 MG, 1X/DAY
     Route: 048
     Dates: start: 20010101, end: 20080313

REACTIONS (2)
  - FATIGUE [None]
  - VOMITING [None]
